FAERS Safety Report 7040380-4 (Version None)
Quarter: 2010Q4

REPORT INFORMATION
  Report Type: 
  Country: None (occurrence: None)
  Receive Date: 20101008
  Receipt Date: 20101008
  Transmission Date: 20110411
  Serious: Yes (Other)
  Sender: FDA-Public Use
  Company Number: None

PATIENT
  Age: 52 Year
  Sex: Male
  Weight: 108 kg

DRUGS (4)
  1. ABILIFY [Suspect]
     Indication: BIPOLAR I DISORDER
     Dosage: 30MG PO QD
     Dates: start: 20091201
  2. VARDENAFIL HYDROCHLORIDE (LEVITRA) [Concomitant]
  3. ZOLPIDEM TARTRATE [Concomitant]
  4. GEMFIBROZIL [Concomitant]

REACTIONS (1)
  - HYPERLIPIDAEMIA [None]
